FAERS Safety Report 19468286 (Version 3)
Quarter: 2021Q3

REPORT INFORMATION
  Report Type: Spontaneous
  Country: JP (occurrence: JP)
  Receive Date: 20210628
  Receipt Date: 20210805
  Transmission Date: 20211014
  Serious: Yes (Death)
  Sender: FDA-Public Use
  Company Number: JP-MERZ PHARMACEUTICALS GMBH-21-02386

PATIENT
  Age: 72 Year
  Sex: Female

DRUGS (6)
  1. CALONAL [Concomitant]
     Active Substance: ACETAMINOPHEN
     Dosage: 7.2 G
  2. LIORESAL [Concomitant]
     Active Substance: BACLOFEN
     Dosage: 15 MG
  3. DIAZEPAM. [Concomitant]
     Active Substance: DIAZEPAM
     Dosage: 1.8 G
  4. DANTRIUM [Concomitant]
     Active Substance: DANTROLENE SODIUM
     Dosage: 2.5 MG
  5. XEOMIN [Suspect]
     Active Substance: INCOBOTULINUMTOXINA
     Indication: MUSCLE SPASMS
     Route: 030
     Dates: start: 20210521, end: 20210521
  6. BOTOX [Concomitant]
     Active Substance: ONABOTULINUMTOXINA
     Indication: MUSCLE SPASMS
     Route: 030
     Dates: start: 20200821, end: 20200821

REACTIONS (1)
  - Death [Fatal]
